FAERS Safety Report 6524427-7 (Version None)
Quarter: 2010Q1

REPORT INFORMATION
  Report Type: 
  Country: None (occurrence: None)
  Receive Date: 20100104
  Receipt Date: 20091218
  Transmission Date: 20100710
  Serious: Yes (Other)
  Sender: FDA-Public Use
  Company Number: US-RB-027157-09

PATIENT
  Age: 39 Year
  Sex: Female

DRUGS (2)
  1. MUCINEX DM [Suspect]
     Dosage: TWO TABLETS TWICE DAILY FOR 12 DAYS
     Route: 048
     Dates: start: 20091202
  2. ANTIHISTAMINE ALLERGY MEDICATION [Concomitant]

REACTIONS (2)
  - BLOOD PRESSURE INCREASED [None]
  - PALPITATIONS [None]
